FAERS Safety Report 8171412-8 (Version None)
Quarter: 2012Q1

REPORT INFORMATION
  Report Type: 
  Country: None (occurrence: None)
  Receive Date: 20120104
  Receipt Date: 20111205
  Transmission Date: 20120608
  Serious: No
  Sender: FDA-Public Use
  Company Number: 2011HGS-002597

PATIENT
  Age: 41 Year
  Sex: Female
  Weight: 85.503 kg

DRUGS (12)
  1. BENLYSTA [Suspect]
     Indication: SYSTEMIC LUPUS ERYTHEMATOSUS
     Dosage: 10 MG/KG, 1 IN 28 D, INTRAVENOUS DRIP
     Route: 041
     Dates: start: 20110629
  2. EFFEXOR [Concomitant]
  3. PLAQUENIL (YYDROXYCHLOROQUINE SULFATE) [Concomitant]
  4. BENLYSTA [Suspect]
  5. LORAZEPAM [Concomitant]
  6. PREDNISONE TAB [Concomitant]
  7. AMBIEN [Concomitant]
  8. PRILOSEC [Concomitant]
  9. BENLYSTA [Suspect]
  10. LODINE [Concomitant]
  11. LIPITOR [Concomitant]
  12. INSULIN (INSULIN) [Concomitant]

REACTIONS (3)
  - CHILLS [None]
  - CHEST PAIN [None]
  - DIZZINESS [None]
